FAERS Safety Report 7664847 (Version 7)
Quarter: 2013Q2

REPORT INFORMATION
  Report Type: Spontaneous
  Country: US (occurrence: US)
  Receive Date: 20101111
  Receipt Date: 20130518
  Transmission Date: 20140414
  Serious: Yes (Other)
  Sender: FDA-Public Use
  Company Number: US-ROCHE-718646

PATIENT
  Age: 30 Year
  Sex: Male
  Weight: 77.1 kg

DRUGS (3)
  1. ACCUTANE [Suspect]
     Indication: ACNE CYSTIC
     Route: 065
     Dates: start: 198302, end: 198304
  2. ACCUTANE [Suspect]
     Route: 065
  3. ACCUTANE [Suspect]
     Dosage: LATE 1990^S
     Route: 065

REACTIONS (6)
  - Crohn^s disease [Unknown]
  - Gastrointestinal injury [Unknown]
  - Duodenal ulcer [Unknown]
  - Ileal fistula [Unknown]
  - Small intestinal obstruction [Unknown]
  - Diverticulum [Unknown]
